FAERS Safety Report 24112884 (Version 2)
Quarter: 2024Q3

REPORT INFORMATION
  Report Type: Report from Study
  Country: IN (occurrence: IN)
  Receive Date: 20240719
  Receipt Date: 20240813
  Transmission Date: 20241016
  Serious: Yes (Other)
  Sender: ELI LILLY AND CO
  Company Number: IN-Merck Healthcare KGaA-2024037516

PATIENT
  Age: 56 Year
  Sex: Male

DRUGS (2)
  1. CETUXIMAB [Suspect]
     Active Substance: CETUXIMAB
     Indication: Colorectal cancer metastatic
     Dosage: 800 MG, OTHER(EVERY 2 WEEK)
     Route: 042
     Dates: start: 20240512
  2. CETUXIMAB [Suspect]
     Active Substance: CETUXIMAB
     Dosage: 400 MG, WEEKLY (1/W)
     Route: 042

REACTIONS (9)
  - Pyrexia [Unknown]
  - Electrolyte imbalance [Unknown]
  - Epistaxis [Unknown]
  - Decreased appetite [Unknown]
  - Diarrhoea [Unknown]
  - Mouth ulceration [Unknown]
  - Dehydration [Unknown]
  - Off label use [Unknown]
  - Adverse drug reaction [Unknown]
